FAERS Safety Report 5983930-9 (Version None)
Quarter: 2008Q4

REPORT INFORMATION
  Report Type: 
  Country: None (occurrence: None)
  Receive Date: 20081208
  Receipt Date: 20081124
  Transmission Date: 20090506
  Serious: Yes (Death, Hospitalization)
  Sender: FDA-Public Use
  Company Number: AT-ROCHE-599011

PATIENT
  Age: 49 Year
  Sex: Female

DRUGS (2)
  1. CAPECITABINE [Suspect]
     Dosage: FORM: CAPSULE SOFT
     Route: 065
  2. VINORELBINE TARTRATE [Suspect]
     Dosage: FORM: CAPSULE (SOFT)
     Route: 065

REACTIONS (2)
  - DISEASE PROGRESSION [None]
  - LYMPHOEDEMA [None]
